FAERS Safety Report 8233350-1 (Version None)
Quarter: 2012Q1

REPORT INFORMATION
  Report Type: 
  Country: None (occurrence: None)
  Receive Date: 20120326
  Receipt Date: 20120314
  Transmission Date: 20120608
  Serious: Yes (Other)
  Sender: FDA-Public Use
  Company Number: BR-US-EMD SERONO, INC.-7119768

PATIENT
  Sex: Female

DRUGS (3)
  1. CARBAMAZEPINE [Concomitant]
     Indication: PRODUCT USED FOR UNKNOWN INDICATION
  2. ARTROLIVE [Concomitant]
     Indication: PRODUCT USED FOR UNKNOWN INDICATION
  3. REBIF [Suspect]
     Indication: RELAPSING-REMITTING MULTIPLE SCLEROSIS
     Dates: start: 20100801

REACTIONS (9)
  - NERVOUSNESS [None]
  - OSTEOARTHRITIS [None]
  - INJECTION SITE PAIN [None]
  - INJECTION SITE ERYTHEMA [None]
  - INJECTION SITE HAEMATOMA [None]
  - OPTIC NEURITIS [None]
  - HYPOAESTHESIA [None]
  - PALPITATIONS [None]
  - ANXIETY [None]
